FAERS Safety Report 16158365 (Version 1)
Quarter: 2019Q2

REPORT INFORMATION
  Report Type: Spontaneous
  Country: DK (occurrence: DK)
  Receive Date: 20190404
  Receipt Date: 20190404
  Transmission Date: 20190711
  Serious: Yes (Hospitalization, Other)
  Sender: FDA-Public Use
  Company Number: PHHY2019DK042008

PATIENT
  Age: 70 Year
  Sex: Male

DRUGS (2)
  1. GENTAMICIN. [Suspect]
     Active Substance: GENTAMICIN
     Indication: ENDOCARDITIS ENTEROCOCCAL
     Dosage: 400 MG, QD
     Route: 042
  2. AMPICILLIN [Concomitant]
     Active Substance: AMPICILLIN
     Indication: ENDOCARDITIS ENTEROCOCCAL
     Route: 042

REACTIONS (5)
  - Vestibular disorder [Not Recovered/Not Resolved]
  - Dizziness [Unknown]
  - Oscillopsia [Unknown]
  - Quality of life decreased [Not Recovered/Not Resolved]
  - Prescribed overdose [Unknown]
